FAERS Safety Report 19343593 (Version 1)
Quarter: 2021Q2

REPORT INFORMATION
  Report Type: Report from Study
  Country: None (occurrence: US)
  Receive Date: 20210530
  Receipt Date: 20210530
  Transmission Date: 20210717
  Serious: Yes (Hospitalization, Other)
  Sender: FDA-Public Use
  Company Number: US-ABBVIE-21K-163-3925405-00

PATIENT
  Sex: Female

DRUGS (1)
  1. HUMIRA [Suspect]
     Active Substance: ADALIMUMAB
     Indication: JUVENILE IDIOPATHIC ARTHRITIS
     Dosage: CITRATE FREE
     Route: 058

REACTIONS (5)
  - Swelling face [Unknown]
  - Seizure [Unknown]
  - White blood cell count decreased [Unknown]
  - Pyrexia [Unknown]
  - Contusion [Unknown]

NARRATIVE: CASE EVENT DATE: 2021
